FAERS Safety Report 25872385 (Version 2)
Quarter: 2025Q4

REPORT INFORMATION
  Report Type: Spontaneous
  Country: EU (occurrence: EU)
  Receive Date: 20251002
  Receipt Date: 20251010
  Transmission Date: 20260117
  Serious: Yes (Other)
  Sender: ALEXION PHARMACEUTICALS
  Company Number: EU-AstraZeneca-CH-00959856A

PATIENT
  Age: 54 Year
  Sex: Female

DRUGS (1)
  1. SAPHNELO [Suspect]
     Active Substance: ANIFROLUMAB-FNIA
     Route: 065

REACTIONS (4)
  - Leukopenia [Unknown]
  - Headache [Unknown]
  - Vomiting [Unknown]
  - Neurological symptom [Unknown]

NARRATIVE: CASE EVENT DATE: 20250711
